FAERS Safety Report 16608577 (Version 3)
Quarter: 2019Q3

REPORT INFORMATION
  Report Type: Spontaneous
  Country: JP (occurrence: JP)
  Receive Date: 20190722
  Receipt Date: 20190924
  Transmission Date: 20191004
  Serious: Yes (Hospitalization, Other)
  Sender: FDA-Public Use
  Company Number: JP-INCYTE CORPORATION-2019IN007105

PATIENT

DRUGS (3)
  1. HYDREA [Concomitant]
     Active Substance: HYDROXYUREA
     Indication: POLYCYTHAEMIA VERA
     Dosage: 1000 MG, UNK
     Route: 065
  2. HYDREA [Concomitant]
     Active Substance: HYDROXYUREA
     Dosage: 500 MG, UNK
     Route: 065
  3. JAKAVI [Suspect]
     Active Substance: RUXOLITINIB
     Indication: MYELOFIBROSIS
     Dosage: UNK
     Route: 048
     Dates: start: 20190520

REACTIONS (6)
  - White blood cell count increased [Unknown]
  - C-reactive protein increased [Unknown]
  - Enterocolitis [Recovered/Resolved]
  - Diarrhoea [Unknown]
  - Concomitant disease aggravated [Unknown]
  - Renal disorder [Unknown]

NARRATIVE: CASE EVENT DATE: 20190613
